FAERS Safety Report 5154098-6 (Version None)
Quarter: 2006Q4

REPORT INFORMATION
  Report Type: 
  Country: None (occurrence: None)
  Receive Date: 20061120
  Receipt Date: 20061026
  Transmission Date: 20070319
  Serious: Yes (Life-Threatening)
  Sender: FDA-Public Use
  Company Number: 2006AP05169

PATIENT
  Age: 83 Year
  Sex: Male

DRUGS (6)
  1. DIPRIVAN [Suspect]
     Indication: SEDATION
     Route: 042
     Dates: start: 20060901, end: 20060922
  2. RISPERDAL [Suspect]
     Route: 048
     Dates: start: 20060913, end: 20060921
  3. CIPROFLOXACIN [Suspect]
     Route: 042
     Dates: start: 20060911, end: 20060921
  4. LASIX [Suspect]
     Dates: start: 20060915, end: 20060927
  5. FAMOTIDINE [Suspect]
     Route: 042
     Dates: start: 20060901, end: 20060916
  6. FAMOTIDINE [Suspect]
     Dates: start: 20060916, end: 20060927

REACTIONS (1)
  - TOXIC EPIDERMAL NECROLYSIS [None]
